FAERS Safety Report 8295704-7 (Version None)
Quarter: 2012Q2

REPORT INFORMATION
  Report Type: 
  Country: None (occurrence: None)
  Receive Date: 20120416
  Receipt Date: 20120402
  Transmission Date: 20120825
  Serious: Yes (Life-Threatening)
  Sender: FDA-Public Use
  Company Number: 1253174

PATIENT
  Age: 62 Year
  Sex: Male

DRUGS (4)
  1. THEOPHYLLINE [Concomitant]
  2. METHYLPREDNISOLONE [Concomitant]
  3. PIPERACILLIN AND TAZOBACTAM [Suspect]
     Indication: PNEUMONIA
     Dosage: 4.5 GRAMS, INTRAVENOUS DRIP
     Route: 041
  4. FUROSEMIDE [Concomitant]

REACTIONS (4)
  - KOUNIS SYNDROME [None]
  - HYPERCHOLESTEROLAEMIA [None]
  - DYSLIPIDAEMIA [None]
  - ANAPHYLACTIC REACTION [None]
